FAERS Safety Report 18409471 (Version 1)
Quarter: 2020Q4

REPORT INFORMATION
  Report Type: Spontaneous
  Country: US (occurrence: US)
  Receive Date: 20201021
  Receipt Date: 20201021
  Transmission Date: 20210114
  Serious: No
  Sender: FDA-Public Use
  Company Number: US-SOMERSET-2020-US-000353

PATIENT
  Age: 76 Year
  Sex: Female

DRUGS (3)
  1. NO DRUG NAME [Concomitant]
     Active Substance: UNSPECIFIED INGREDIENT
     Dosage: PATIENT INSTILLS 1 DROP IN EACH EYE TWICE PER DAY
  2. DORZOLAMIDE HYDROCHLORIDE AND TIMOLOL MALEATE OPHTHALMIC [Suspect]
     Active Substance: DORZOLAMIDE HYDROCHLORIDE\TIMOLOL MALEATE
     Dosage: PATIENT INSTILLS 1 DROP IN EACH EYE TWICE PER DAY
     Dates: start: 20200813, end: 20200906
  3. NO DRUG NAME [Concomitant]
     Active Substance: UNSPECIFIED INGREDIENT
     Dosage: PATIENT TAKES KLONOPIN 0.5% TABLET THREE TIMES PER DAY
     Route: 048

REACTIONS (3)
  - Headache [Recovered/Resolved]
  - Pain in extremity [Recovered/Resolved]
  - Vision blurred [Recovered/Resolved]

NARRATIVE: CASE EVENT DATE: 20200814
